FAERS Safety Report 14611678 (Version 1)
Quarter: 2018Q1

REPORT INFORMATION
  Report Type: Spontaneous
  Country: US (occurrence: US)
  Receive Date: 20180308
  Receipt Date: 20180308
  Transmission Date: 20180509
  Serious: No
  Sender: FDA-Public Use
  Company Number: US-PFIZER INC-2018087231

PATIENT
  Sex: Male

DRUGS (1)
  1. ADVIL PM [Suspect]
     Active Substance: DIPHENHYDRAMINE CITRATE\IBUPROFEN
     Dosage: 4 DF, 1X/DAY [4 ADVIL PM CAPLETS AT NIGHT]
     Dates: end: 20180227

REACTIONS (2)
  - Alopecia [Recovered/Resolved]
  - Overdose [Unknown]
